FAERS Safety Report 6945318-3 (Version None)
Quarter: 2010Q3

REPORT INFORMATION
  Report Type: 
  Country: None (occurrence: None)
  Receive Date: 20100827
  Receipt Date: 20100816
  Transmission Date: 20110219
  Serious: Yes (Other)
  Sender: FDA-Public Use
  Company Number: AU-WATSON-2010-11363

PATIENT
  Age: 58 Year
  Sex: Female

DRUGS (1)
  1. PRAZOSIN (WATSON LABORATORIES) [Suspect]
     Indication: HYPERTENSION
     Dosage: 1 MG, BID

REACTIONS (1)
  - PRIMARY HYPERALDOSTERONISM [None]
